FAERS Safety Report 14744921 (Version 1)
Quarter: 2018Q2

REPORT INFORMATION
  Report Type: Spontaneous
  Country: CH (occurrence: CH)
  Receive Date: 20180411
  Receipt Date: 20180411
  Transmission Date: 20180711
  Serious: Yes (Hospitalization, Other)
  Sender: FDA-Public Use
  Company Number: CH-AMGEN-CHESP2018019477

PATIENT
  Age: 79 Year
  Sex: Female
  Weight: 82 kg

DRUGS (3)
  1. PROLIA [Suspect]
     Active Substance: DENOSUMAB
     Dosage: 60 MG, Q6MO
     Route: 042
     Dates: start: 20180208
  2. CALCIUMACETAT [Concomitant]
     Active Substance: CALCIUM ACETATE
     Dosage: 400 MG, TID
  3. PROLIA [Suspect]
     Active Substance: DENOSUMAB
     Indication: OSTEOPOROSIS
     Dosage: 60 MG, Q6MO
     Route: 058
     Dates: start: 20140102

REACTIONS (3)
  - Hypocalcaemia [Unknown]
  - Incorrect route of drug administration [Recovered/Resolved]
  - Blood parathyroid hormone increased [Unknown]

NARRATIVE: CASE EVENT DATE: 20180208
